FAERS Safety Report 5521480-4 (Version None)
Quarter: 2007Q4

REPORT INFORMATION
  Report Type: 
  Country: None (occurrence: None)
  Receive Date: 20071119
  Receipt Date: 20071109
  Transmission Date: 20080405
  Serious: Yes (Other)
  Sender: FDA-Public Use
  Company Number: JP-PFIZER INC-2007092609

PATIENT
  Sex: Female

DRUGS (14)
  1. CELECOX [Suspect]
     Indication: ARTHRALGIA
     Route: 048
  2. PHENLASE-S [Concomitant]
     Route: 048
  3. ALL OTHER THERAPEUTIC PRODUCTS [Concomitant]
     Route: 048
  4. SULFASALAZINE [Concomitant]
     Indication: ARTHRALGIA
     Route: 048
  5. PREDNISOLONE [Concomitant]
     Indication: ARTHRALGIA
     Route: 048
  6. WARFARIN SODIUM [Concomitant]
     Route: 048
  7. WARFARIN POTASSIUM [Concomitant]
     Route: 048
  8. LASIX [Concomitant]
     Route: 048
  9. DIGOXIN [Concomitant]
     Route: 048
  10. SLOW-K [Concomitant]
     Route: 048
  11. ULCERLMIN [Concomitant]
     Route: 048
  12. MUCOSTA [Concomitant]
     Route: 048
  13. CIMETIDINE [Concomitant]
     Indication: ARTHRALGIA
     Route: 048
  14. PROLMON [Concomitant]
     Route: 048

REACTIONS (7)
  - ANOREXIA [None]
  - ASPARTATE AMINOTRANSFERASE INCREASED [None]
  - BLOOD LACTATE DEHYDROGENASE INCREASED [None]
  - CONDITION AGGRAVATED [None]
  - GENERAL PHYSICAL CONDITION ABNORMAL [None]
  - HAEMOLYTIC ANAEMIA [None]
  - OEDEMA PERIPHERAL [None]
